FAERS Safety Report 12421210 (Version 1)
Quarter: 2016Q2

REPORT INFORMATION
  Report Type: Spontaneous
  Country: CN (occurrence: CN)
  Receive Date: 20160531
  Receipt Date: 20160531
  Transmission Date: 20160815
  Serious: Yes (Other)
  Sender: FDA-Public Use
  Company Number: CN-JNJFOC-20160523356

PATIENT

DRUGS (1)
  1. RISPERDAL [Suspect]
     Active Substance: RISPERIDONE
     Indication: SCHIZOPHRENIA
     Dosage: 3-6 MG FOR 8 WEEKS
     Route: 048

REACTIONS (4)
  - Nausea [Recovering/Resolving]
  - Menstrual disorder [Recovering/Resolving]
  - Weight increased [Recovering/Resolving]
  - Arrhythmia [Recovering/Resolving]
